FAERS Safety Report 6649814-8 (Version None)
Quarter: 2010Q1

REPORT INFORMATION
  Report Type: 
  Country: None (occurrence: None)
  Receive Date: 20100324
  Receipt Date: 20100128
  Transmission Date: 20100710
  Serious: No
  Sender: FDA-Public Use
  Company Number: US-TYCO HEALTHCARE/MALLINCKRODT-T201000573

PATIENT

DRUGS (7)
  1. NALTREXONE HYDROCHLORIDE [Suspect]
     Indication: IRRITABLE BOWEL SYNDROME
     Dosage: 50 MG, SINGLE
     Route: 048
     Dates: start: 20100127
  2. NALTREXONE HYDROCHLORIDE [Suspect]
     Indication: FIBROMYALGIA
  3. TRAMADOL HCL [Concomitant]
     Indication: PAIN
     Dosage: 150 MG, QID
  4. MIRAPEX [Concomitant]
     Indication: RESTLESS LEGS SYNDROME
     Dosage: 25 MG, BEFORE BED
  5. CLONAZEPAM [Concomitant]
     Indication: INSOMNIA
     Dosage: 1 MG, QD
  6. HYDROCHLOROTHIAZIDE [Concomitant]
     Indication: MICTURITION DISORDER
     Dosage: 1 OR 2 PER DAY
  7. COLODETOX [Concomitant]
     Indication: BOWEL MOVEMENT IRREGULARITY
     Dosage: 1 QD

REACTIONS (7)
  - CHEST DISCOMFORT [None]
  - IRRITABILITY [None]
  - LOSS OF CONSCIOUSNESS [None]
  - OFF LABEL USE [None]
  - PAIN [None]
  - URINE OUTPUT INCREASED [None]
  - WEIGHT DECREASED [None]
